FAERS Safety Report 10213405 (Version 1)
Quarter: 2014Q2

REPORT INFORMATION
  Report Type: Spontaneous
  Country: CN (occurrence: None)
  Receive Date: 20140529
  Receipt Date: 20140529
  Transmission Date: 20141212
  Serious: Yes (Other)
  Sender: FDA-Public Use
  Company Number: FK201401913

PATIENT
  Age: 56 Year
  Sex: Female

DRUGS (1)
  1. INTRALIPID [Suspect]
     Indication: NUTRITIONAL SUPPLEMENTATION
     Route: 041
     Dates: start: 20130510, end: 20130510

REACTIONS (5)
  - Headache [None]
  - Abdominal pain [None]
  - Diarrhoea [None]
  - Vomiting [None]
  - Nausea [None]
